FAERS Safety Report 25773332 (Version 3)
Quarter: 2025Q4

REPORT INFORMATION
  Report Type: Spontaneous
  Country: EU (occurrence: EU)
  Receive Date: 20250908
  Receipt Date: 20251007
  Transmission Date: 20260118
  Serious: Yes (Hospitalization, Other)
  Sender: ABBVIE
  Company Number: EU-ABBVIE-6446117

PATIENT
  Age: 22 Year
  Sex: Female
  Weight: 51 kg

DRUGS (5)
  1. HUMIRA [Suspect]
     Active Substance: ADALIMUMAB
     Indication: Colitis ulcerative
     Route: 058
     Dates: start: 20250717, end: 20250729
  2. HUMIRA [Suspect]
     Active Substance: ADALIMUMAB
     Route: 058
     Dates: start: 20250414
  3. DIENOGEST\ETHINYL ESTRADIOL [Concomitant]
     Active Substance: DIENOGEST\ETHINYL ESTRADIOL
     Indication: Contraception
     Dosage: 0.03/2.0 MG
  4. CHOLECALCIFEROL [Concomitant]
     Active Substance: CHOLECALCIFEROL
     Indication: Vitamin supplementation
     Dosage: 2000 I.E
  5. CHOLECALCIFEROL [Concomitant]
     Active Substance: CHOLECALCIFEROL
     Indication: Product used for unknown indication
     Dosage: 20000 I.E

REACTIONS (12)
  - Neoplasm [Recovering/Resolving]
  - Colitis [Recovering/Resolving]
  - Localised infection [Recovering/Resolving]
  - Genital abscess [Recovering/Resolving]
  - Breast abscess [Recovering/Resolving]
  - Bone abscess [Recovering/Resolving]
  - C-reactive protein increased [Unknown]
  - Faecal calprotectin increased [Unknown]
  - Folliculitis [Unknown]
  - Colitis ulcerative [Unknown]
  - Localised infection [Unknown]
  - Subcutaneous abscess [Unknown]

NARRATIVE: CASE EVENT DATE: 20250616
